FAERS Safety Report 4896808-9 (Version None)
Quarter: 2005Q4

REPORT INFORMATION
  Report Type: 
  Country: None (occurrence: None)
  Receive Date: 20051223
  Receipt Date: 20050901
  Transmission Date: 20060501
  Serious: Yes (Other)
  Sender: FDA-Public Use
  Company Number: 217009

PATIENT
  Age: 40 Year
  Sex: Female
  Weight: 98.9 kg

DRUGS (3)
  1. AVASTIN [Suspect]
     Indication: COLON CANCER
     Dosage: 1000 MG, Q2W, INTRAVENOUS
     Route: 042
     Dates: start: 20050418, end: 20050801
  2. OXALIPLATIN (OXALIPLATIN) [Concomitant]
  3. XELODA [Concomitant]

REACTIONS (1)
  - POLYSEROSITIS [None]
